FAERS Safety Report 21009327 (Version 2)
Quarter: 2022Q3

REPORT INFORMATION
  Report Type: Spontaneous
  Country: US (occurrence: US)
  Receive Date: 20220627
  Receipt Date: 20220727
  Transmission Date: 20221027
  Serious: Yes (Death, Other)
  Sender: FDA-Public Use
  Company Number: US-BRISTOL-MYERS SQUIBB COMPANY-2022-062231

PATIENT
  Age: 79 Year
  Sex: Male

DRUGS (7)
  1. OPDIVO [Suspect]
     Active Substance: NIVOLUMAB
     Indication: Oesophageal carcinoma
     Dosage: DOSE : 240 MG;     FREQ : EVERY 2 WEEKS
     Route: 065
  2. ASPIRIN [Concomitant]
     Active Substance: ASPIRIN
     Indication: Thrombosis
     Route: 048
     Dates: start: 20220127
  3. CLOPIDOGREL [Concomitant]
     Active Substance: CLOPIDOGREL BISULFATE
     Indication: Thrombosis
     Route: 048
     Dates: start: 20220127
  4. METOPROLOL [Concomitant]
     Active Substance: METOPROLOL
     Indication: Blood pressure abnormal
     Dosage: BID (TWO TIMES A DAY)
     Route: 048
  5. EZETIMIBE [Concomitant]
     Active Substance: EZETIMIBE
     Indication: Blood cholesterol abnormal
     Route: 048
  6. ZOMETA [Concomitant]
     Active Substance: ZOLEDRONIC ACID
     Indication: Metastases to bone
     Route: 042
  7. NERVINE [Concomitant]
     Indication: Neuropathy peripheral
     Route: 048

REACTIONS (1)
  - Death [Fatal]

NARRATIVE: CASE EVENT DATE: 20220501
